FAERS Safety Report 20703898 (Version 1)
Quarter: 2022Q2

REPORT INFORMATION
  Report Type: Spontaneous
  Country: US (occurrence: US)
  Receive Date: 20220413
  Receipt Date: 20220413
  Transmission Date: 20220721
  Serious: Yes (Death, Life-Threatening, Hospitalization, Other)
  Sender: FDA-Public Use
  Company Number: US-AMGEN-USASP2022061245

PATIENT

DRUGS (8)
  1. FILGRASTIM [Suspect]
     Active Substance: FILGRASTIM
     Indication: Haematopoietic stem cell mobilisation
     Dosage: UNK
     Route: 065
  2. FLUDARABINE [Concomitant]
     Active Substance: FLUDARABINE PHOSPHATE
     Dosage: UNK
  3. MELPHALAN [Concomitant]
     Active Substance: MELPHALAN
  4. BUSULFAN [Concomitant]
     Active Substance: BUSULFAN
  5. CYCLOPHOSPHAMIDE [Concomitant]
     Active Substance: CYCLOPHOSPHAMIDE
  6. MYCOPHENOLATE MOFETIL [Concomitant]
     Active Substance: MYCOPHENOLATE MOFETIL
  7. THIOTEPA [Concomitant]
     Active Substance: THIOTEPA
  8. CLOFARABINE [Concomitant]
     Active Substance: CLOFARABINE

REACTIONS (23)
  - Death [Fatal]
  - Haematological malignancy [Fatal]
  - Infection [Fatal]
  - Hepatotoxicity [Fatal]
  - Pulmonary toxicity [Fatal]
  - Multiple organ dysfunction syndrome [Fatal]
  - Cardiotoxicity [Fatal]
  - Acute graft versus host disease [Unknown]
  - Hospitalisation [Unknown]
  - Chronic graft versus host disease [Unknown]
  - Bacterial infection [Unknown]
  - BK virus infection [Unknown]
  - Adenovirus infection [Unknown]
  - Epstein-Barr virus infection [Unknown]
  - Herpes virus infection [Unknown]
  - Ophthalmic herpes simplex [Unknown]
  - Respiratory syncytial virus infection [Unknown]
  - Parainfluenzae virus infection [Unknown]
  - Rhinovirus infection [Unknown]
  - Fungal infection [Unknown]
  - Sleep disorder [Unknown]
  - Body dysmorphic disorder [Unknown]
  - Transplant failure [Unknown]
